FAERS Safety Report 8523941-2 (Version None)
Quarter: 2012Q3

REPORT INFORMATION
  Report Type: 
  Country: None (occurrence: None)
  Receive Date: 20120720
  Receipt Date: 20120710
  Transmission Date: 20120928
  Serious: Yes (Hospitalization)
  Sender: FDA-Public Use
  Company Number: FR-CELGENEUS-056-21880-12042123

PATIENT
  Sex: Female

DRUGS (4)
  1. PREDNISOLONE [Concomitant]
     Route: 065
     Dates: start: 20120220
  2. REVLIMID [Suspect]
     Dosage: 5 MILLIGRAM
     Route: 048
     Dates: start: 20120220
  3. ANTICOAGULANT [Concomitant]
     Route: 065
  4. PREDNISONE [Concomitant]
     Dosage: 40 MILLIGRAM
     Route: 065
     Dates: start: 20120220

REACTIONS (2)
  - HYPONATRAEMIA [None]
  - ALTERED STATE OF CONSCIOUSNESS [None]
